FAERS Safety Report 9753233 (Version 1)
Quarter: 2013Q4

REPORT INFORMATION
  Report Type: Spontaneous
  Country: US (occurrence: US)
  Receive Date: 20131213
  Receipt Date: 20131213
  Transmission Date: 20140711
  Serious: No
  Sender: FDA-Public Use
  Company Number: US-GILEAD-2010-0027623

PATIENT
  Sex: Female
  Weight: 81.65 kg

DRUGS (18)
  1. LETAIRIS [Suspect]
     Indication: PULMONARY ARTERIAL HYPERTENSION
     Route: 048
     Dates: start: 20080820
  2. VERAMYST [Concomitant]
  3. ALBUTEROL [Concomitant]
  4. ALLEGRA [Concomitant]
  5. CLARITIN [Concomitant]
  6. BENADRYL [Concomitant]
  7. TYLENOL ES [Concomitant]
  8. FLONASE [Concomitant]
  9. TENORMIN [Concomitant]
  10. ZOLOFT [Concomitant]
  11. BUSPAR [Concomitant]
  12. L-ARGININE [Concomitant]
  13. ASPIRIN [Concomitant]
  14. FLAXSEED OIL [Concomitant]
  15. COENZYME [Concomitant]
  16. HYDROCHLOROTHIAZIDE [Concomitant]
  17. OMEGA-3 [Concomitant]
  18. MULTIVITAMIN [Concomitant]

REACTIONS (1)
  - Chest pain [Unknown]
